FAERS Safety Report 5034880-6 (Version None)
Quarter: 2006Q2

REPORT INFORMATION
  Report Type: 
  Country: None (occurrence: None)
  Receive Date: 20060627
  Receipt Date: 20060616
  Transmission Date: 20061013
  Serious: Yes (Other)
  Sender: FDA-Public Use
  Company Number: PHEH2006US07896

PATIENT
  Sex: Male

DRUGS (2)
  1. CLOZARIL [Suspect]
     Indication: SCHIZOPHRENIA
     Dosage: 300 MG, QD
     Route: 048
     Dates: start: 19910101
  2. GEODON [Concomitant]
     Indication: SCHIZOPHRENIA
     Dosage: 80 MG, QD

REACTIONS (6)
  - ABNORMAL BEHAVIOUR [None]
  - CEREBROVASCULAR DISORDER [None]
  - CONVULSION [None]
  - DELUSION [None]
  - INAPPROPRIATE AFFECT [None]
  - INTRACRANIAL ANEURYSM [None]
